FAERS Safety Report 22953256 (Version 4)
Quarter: 2023Q4

REPORT INFORMATION
  Report Type: Spontaneous
  Country: CO (occurrence: CO)
  Receive Date: 20230918
  Receipt Date: 20231103
  Transmission Date: 20240109
  Serious: No
  Sender: FDA-Public Use
  Company Number: CO-PFIZER INC-PV202300146847

PATIENT
  Age: 13 Year
  Sex: Male

DRUGS (1)
  1. GENOTROPIN [Suspect]
     Active Substance: SOMATROPIN
     Dosage: 1.4 MG
     Route: 058

REACTIONS (3)
  - Drug dose omission by device [Unknown]
  - Device mechanical issue [Unknown]
  - Device leakage [Unknown]

NARRATIVE: CASE EVENT DATE: 20230824
